FAERS Safety Report 5471041-0 (Version None)
Quarter: 2007Q3

REPORT INFORMATION
  Report Type: 
  Country: None (occurrence: None)
  Receive Date: 20070925
  Receipt Date: 20070918
  Transmission Date: 20080115
  Serious: Yes (Other)
  Sender: FDA-Public Use
  Company Number: 2007331320

PATIENT
  Sex: Male
  Weight: 90.7 kg

DRUGS (2)
  1. LISTERINE (MENTHOL, METHYL SALICYLATE, EUCALYPTOL, THYMOL) [Suspect]
     Dosage: 8 OZ. ONCE, ORAL
     Route: 048
     Dates: start: 20070918, end: 20070918
  2. DEPAKOTE [Concomitant]

REACTIONS (1)
  - INTENTIONAL DRUG MISUSE [None]
